FAERS Safety Report 5293009-X (Version None)
Quarter: 2007Q2

REPORT INFORMATION
  Report Type: 
  Country: None (occurrence: None)
  Receive Date: 20070411
  Receipt Date: 20070404
  Transmission Date: 20071010
  Serious: Yes (Other)
  Sender: FDA-Public Use
  Company Number: JP-ELI_LILLY_AND_COMPANY-JP200704001582

PATIENT
  Sex: Male

DRUGS (2)
  1. GEMZAR [Suspect]
     Indication: URINARY TRACT CARCINOMA IN SITU
     Route: 042
  2. DOCETAXEL [Concomitant]
     Indication: URINARY TRACT CARCINOMA IN SITU

REACTIONS (1)
  - LYMPHANGITIS [None]
